FAERS Safety Report 9951807 (Version 2)
Quarter: 2014Q1

REPORT INFORMATION
  Report Type: Report from Study
  Country: US (occurrence: US)
  Receive Date: 20140304
  Receipt Date: 20140304
  Transmission Date: 20141002
  Serious: Yes (Hospitalization, Disabling)
  Sender: FDA-Public Use
  Company Number: PHEH2014US002150

PATIENT
  Age: 50 Year
  Sex: Female
  Weight: 66.67 kg

DRUGS (4)
  1. GILENYA [Suspect]
     Indication: RELAPSING-REMITTING MULTIPLE SCLEROSIS
     Dosage: 0.5 MG, QD
     Route: 048
     Dates: start: 20131220
  2. FOLIC ACID [Concomitant]
     Dosage: 1 MG, DAILY
     Route: 048
  3. NEURONTIN [Concomitant]
     Dosage: 400 MG, DAILY
     Route: 048
  4. PROVIGIL//MODAFINIL [Concomitant]
     Dosage: 200 MG, DAILY
     Route: 048

REACTIONS (7)
  - Chest pain [Recovered/Resolved]
  - Chest discomfort [Recovered/Resolved]
  - Agitation [Unknown]
  - Irritability [Unknown]
  - Multiple sclerosis relapse [Not Recovered/Not Resolved]
  - Central nervous system lesion [Unknown]
  - Cognitive disorder [Not Recovered/Not Resolved]
